FAERS Safety Report 12389649 (Version 3)
Quarter: 2016Q3

REPORT INFORMATION
  Report Type: Spontaneous
  Country: ES (occurrence: ES)
  Receive Date: 20160520
  Receipt Date: 20160812
  Transmission Date: 20161109
  Serious: Yes (Hospitalization, Other)
  Sender: FDA-Public Use
  Company Number: ES-SA-2016SA095276

PATIENT
  Age: 78 Year
  Sex: Male

DRUGS (10)
  1. EZETIMIBE. [Concomitant]
     Active Substance: EZETIMIBE
  2. METRONIDAZOLE. [Concomitant]
     Active Substance: METRONIDAZOLE
     Indication: ANTIBIOTIC THERAPY
  3. CLOPIDOGREL BISULFATE. [Suspect]
     Active Substance: CLOPIDOGREL BISULFATE
     Route: 065
     Dates: start: 2013, end: 2014
  4. ATORVASTATIN [Concomitant]
     Active Substance: ATORVASTATIN
  5. INSULIN [Concomitant]
     Active Substance: INSULIN NOS
  6. RANITIDINE. [Concomitant]
     Active Substance: RANITIDINE
  7. AMLODIPINE [Concomitant]
     Active Substance: AMLODIPINE BESYLATE
  8. FUROSEMIDE. [Concomitant]
     Active Substance: FUROSEMIDE
  9. LEVOTHYROXINE. [Concomitant]
     Active Substance: LEVOTHYROXINE
  10. NITROGLYCERINE [Concomitant]
     Active Substance: NITROGLYCERIN

REACTIONS (17)
  - Hepatitis toxic [Recovering/Resolving]
  - Aspartate aminotransferase increased [Recovering/Resolving]
  - Biopsy liver abnormal [Recovering/Resolving]
  - Ascites [Recovering/Resolving]
  - Bilirubin conjugated increased [Recovering/Resolving]
  - Blood bilirubin increased [Recovering/Resolving]
  - Asthenia [Recovering/Resolving]
  - Hepatic steatosis [Recovering/Resolving]
  - Ocular icterus [Recovering/Resolving]
  - Hepatitis cholestatic [Recovering/Resolving]
  - Decreased appetite [Recovering/Resolving]
  - Alanine aminotransferase increased [Recovering/Resolving]
  - Gamma-glutamyltransferase increased [Recovering/Resolving]
  - Blood alkaline phosphatase increased [Recovering/Resolving]
  - Mixed liver injury [Recovering/Resolving]
  - Pruritus generalised [Recovering/Resolving]
  - Abdominal distension [Recovering/Resolving]

NARRATIVE: CASE EVENT DATE: 2014
